FAERS Safety Report 4890872-9 (Version None)
Quarter: 2006Q1

REPORT INFORMATION
  Report Type: 
  Country: None (occurrence: None)
  Receive Date: 20060123
  Receipt Date: 20060109
  Transmission Date: 20060701
  Serious: Yes (Other)
  Sender: FDA-Public Use
  Company Number: HQWYE993114DEC05

PATIENT
  Age: 66 Year
  Sex: Female
  Weight: 63.56 kg

DRUGS (3)
  1. PREMARIN [Suspect]
     Indication: HOT FLUSH
     Dosage: 1 TABLET  1X PER 1 DAY, ORAL
     Route: 048
     Dates: start: 19750101, end: 20030101
  2. NEXIUM [Concomitant]
  3. LEVOTHYROXINE SODIUM [Concomitant]

REACTIONS (3)
  - CONGESTIVE CARDIOMYOPATHY [None]
  - OSTEOPOROSIS [None]
  - PAIN [None]
